FAERS Safety Report 8857516 (Version 2)
Quarter: 2013Q3

REPORT INFORMATION
  Report Type: Spontaneous
  Country: US (occurrence: US)
  Receive Date: 20121024
  Receipt Date: 20130725
  Transmission Date: 20140515
  Serious: Yes (Other)
  Sender: FDA-Public Use
  Company Number: US-GLAXOSMITHKLINE-A0899156A

PATIENT
  Sex: Male

DRUGS (1)
  1. AVANDIA [Suspect]
     Indication: DIABETES MELLITUS
     Dosage: 8MG PER DAY
     Route: 048
     Dates: start: 20040602, end: 20080616

REACTIONS (4)
  - Angina pectoris [Recovering/Resolving]
  - Coronary artery disease [Unknown]
  - Cardiovascular disorder [Unknown]
  - Chest pain [Unknown]
